FAERS Safety Report 22116943 (Version 1)
Quarter: 2023Q1

REPORT INFORMATION
  Report Type: Report from Study
  Country: ES (occurrence: ES)
  Receive Date: 20230320
  Receipt Date: 20230320
  Transmission Date: 20230417
  Serious: Yes (Other)
  Sender: FDA-Public Use
  Company Number: ES-PFIZER INC-2020447952

PATIENT

DRUGS (2)
  1. PACLITAXEL [Suspect]
     Active Substance: PACLITAXEL
     Indication: Neoplasm
     Dosage: 80 MG/M2, WEEKLY
     Route: 042
  2. ALPELISIB [Suspect]
     Active Substance: ALPELISIB
     Indication: Neoplasm
     Dosage: 250 MG, DAILY
     Route: 048

REACTIONS (3)
  - Acute kidney injury [Unknown]
  - Hyperglycaemia [Unknown]
  - Dehydration [Unknown]
